FAERS Safety Report 5571350-0 (Version None)
Quarter: 2007Q4

REPORT INFORMATION
  Report Type: 
  Country: None (occurrence: None)
  Receive Date: 20071221
  Receipt Date: 20070809
  Transmission Date: 20080405
  Serious: No
  Sender: FDA-Public Use
  Company Number: A0669197A

PATIENT
  Age: 44 Year
  Sex: Male

DRUGS (4)
  1. FLONASE [Suspect]
     Route: 045
     Dates: start: 20010101, end: 20070808
  2. FLOVENT [Suspect]
     Indication: ASTHMA
     Route: 055
     Dates: start: 20010101, end: 20070808
  3. ATIVAN [Concomitant]
  4. KLONOPIN [Concomitant]

REACTIONS (2)
  - ADVERSE EVENT [None]
  - DRY MOUTH [None]
